FAERS Safety Report 21631597 (Version 1)
Quarter: 2022Q4

REPORT INFORMATION
  Report Type: Spontaneous
  Country: TR (occurrence: TR)
  Receive Date: 20221123
  Receipt Date: 20221123
  Transmission Date: 20230113
  Serious: Yes (Hospitalization, Other)
  Sender: FDA-Public Use
  Company Number: TR-ALKEM LABORATORIES LIMITED-TR-ALKEM-2022-13071

PATIENT
  Age: 30 Month
  Sex: Male

DRUGS (1)
  1. COLCHICINE [Suspect]
     Active Substance: COLCHICINE
     Indication: Product used for unknown indication
     Dosage: 0.19 MILLIGRAM/KILOGRAM
     Route: 048

REACTIONS (7)
  - Pancytopenia [Recovered/Resolved]
  - Sepsis [Recovered/Resolved]
  - Leukocytosis [Recovered/Resolved]
  - Hepatosplenomegaly [Recovered/Resolved]
  - Toxicity to various agents [Recovered/Resolved]
  - Vomiting [Recovered/Resolved]
  - Accidental exposure to product by child [Unknown]
